FAERS Safety Report 6945124-X (Version None)
Quarter: 2010Q3

REPORT INFORMATION
  Report Type: 
  Country: None (occurrence: None)
  Receive Date: 20100827
  Receipt Date: 20100820
  Transmission Date: 20110219
  Serious: Yes (Hospitalization, Other)
  Sender: FDA-Public Use
  Company Number: CZ-JNJFOC-20100807216

PATIENT
  Age: 29 Year
  Sex: Male
  Weight: 85 kg

DRUGS (5)
  1. REMICADE [Suspect]
     Indication: COLITIS ULCERATIVE
     Route: 042
  2. PREDNISONE [Concomitant]
     Indication: COLITIS ULCERATIVE
     Route: 048
  3. IMURAN [Concomitant]
     Indication: COLITIS ULCERATIVE
     Route: 048
  4. LANZUL [Concomitant]
     Indication: PROPHYLAXIS
     Route: 048
  5. CALTRATE [Concomitant]
     Indication: PROPHYLAXIS
     Route: 048

REACTIONS (1)
  - CYTOMEGALOVIRUS COLITIS [None]
